FAERS Safety Report 4498524-4 (Version None)
Quarter: 2004Q4

REPORT INFORMATION
  Report Type: 
  Country: None (occurrence: None)
  Receive Date: 20041105
  Receipt Date: 20041020
  Transmission Date: 20050328
  Serious: Yes (Hospitalization)
  Sender: FDA-Public Use
  Company Number: 206338

PATIENT
  Age: 50 Year
  Sex: Female

DRUGS (1)
  1. AVONEX [Suspect]
     Indication: MULTIPLE SCLEROSIS
     Dosage: 30 MCG QW IM
     Route: 030
     Dates: start: 20041008

REACTIONS (5)
  - DIALYSIS [None]
  - FALL [None]
  - INFLUENZA LIKE ILLNESS [None]
  - LIMB OPERATION [None]
  - RENAL FAILURE [None]
